FAERS Safety Report 12692353 (Version 1)
Quarter: 2016Q3

REPORT INFORMATION
  Report Type: Spontaneous
  Country: FR (occurrence: FR)
  Receive Date: 20160828
  Receipt Date: 20160828
  Transmission Date: 20161109
  Serious: Yes (Other)
  Sender: FDA-Public Use
  Company Number: FR-ELI_LILLY_AND_COMPANY-FR201608008709

PATIENT
  Age: 68 Year
  Sex: Female

DRUGS (5)
  1. FORSTEO [Suspect]
     Active Substance: TERIPARATIDE
     Indication: OSTEOPOROSIS
     Dosage: UNK, UNKNOWN
     Route: 065
     Dates: start: 201510
  2. UVEDOSE [Concomitant]
     Active Substance: CHOLECALCIFEROL
  3. TRACE ELEMENT [Concomitant]
     Indication: RHEUMATIC DISORDER
  4. VITAMIN D [Concomitant]
     Active Substance: CHOLECALCIFEROL
  5. OROCAL                             /07357001/ [Concomitant]

REACTIONS (2)
  - Femur fracture [Unknown]
  - Pain in extremity [Not Recovered/Not Resolved]

NARRATIVE: CASE EVENT DATE: 201604
